FAERS Safety Report 25779044 (Version 1)
Quarter: 2025Q3

REPORT INFORMATION
  Report Type: Spontaneous
  Country: CN (occurrence: CN)
  Receive Date: 20250909
  Receipt Date: 20250909
  Transmission Date: 20251021
  Serious: Yes (Hospitalization)
  Sender: PFIZER
  Company Number: CN-PFIZER INC-PV202500107871

PATIENT
  Age: 36 Year
  Sex: Male

DRUGS (2)
  1. ZYVOX [Suspect]
     Active Substance: LINEZOLID
     Indication: Hepatic cirrhosis
     Dosage: 0.6 G, 2X/DAY
     Route: 048
     Dates: start: 20250401, end: 20250403
  2. ZYVOX [Suspect]
     Active Substance: LINEZOLID
     Indication: Bacterial infection

REACTIONS (4)
  - Emotional disorder [Recovering/Resolving]
  - Affect lability [Recovering/Resolving]
  - Suicidal ideation [Recovering/Resolving]
  - Depressed mood [Recovering/Resolving]

NARRATIVE: CASE EVENT DATE: 20250403
